FAERS Safety Report 5759227-9 (Version None)
Quarter: 2008Q2

REPORT INFORMATION
  Report Type: 
  Country: None (occurrence: None)
  Receive Date: 20080604
  Receipt Date: 20080523
  Transmission Date: 20081010
  Serious: Yes (Other)
  Sender: FDA-Public Use
  Company Number: US-PFIZER INC-2008045253

PATIENT
  Sex: Female
  Weight: 68 kg

DRUGS (8)
  1. LYRICA [Suspect]
     Indication: FIBROMYALGIA
  2. PAXIL [Concomitant]
  3. VALIUM [Concomitant]
  4. PERCOCET [Concomitant]
  5. SYNTHROID [Concomitant]
  6. CARDURA [Concomitant]
  7. LOTREL [Concomitant]
  8. PLAVIX [Concomitant]

REACTIONS (8)
  - ANXIETY [None]
  - CRYING [None]
  - DEPRESSION [None]
  - HYPERNATRAEMIA [None]
  - MOOD SWINGS [None]
  - PARANOIA [None]
  - SUICIDAL IDEATION [None]
  - WEIGHT INCREASED [None]
